FAERS Safety Report 9360471 (Version 1)
Quarter: 2013Q2

REPORT INFORMATION
  Report Type: Spontaneous
  Country: US (occurrence: US)
  Receive Date: 20130621
  Receipt Date: 20130621
  Transmission Date: 20140414
  Serious: Yes (Other)
  Sender: FDA-Public Use
  Company Number: US-US-EMD SERONO, INC.-7014763

PATIENT
  Sex: Female

DRUGS (2)
  1. REBIF [Suspect]
     Indication: PRODUCT USED FOR UNKNOWN INDICATION
     Route: 058
     Dates: start: 20090715, end: 200912
  2. REBIF [Suspect]
     Route: 058
     Dates: end: 201209

REACTIONS (4)
  - Convulsion [Unknown]
  - Dizziness [Unknown]
  - Skin irritation [Unknown]
  - Headache [Unknown]
